FAERS Safety Report 14200854 (Version 1)
Quarter: 2017Q4

REPORT INFORMATION
  Report Type: Spontaneous
  Country: US (occurrence: US)
  Receive Date: 20171117
  Receipt Date: 20171117
  Transmission Date: 20180321
  Serious: Yes (Other)
  Sender: FDA-Public Use
  Company Number: US-NOVOPROD-551530

PATIENT
  Age: 66 Year
  Sex: Male

DRUGS (3)
  1. NOVOLOG [Suspect]
     Active Substance: INSULIN ASPART
     Indication: TYPE 1 DIABETES MELLITUS
     Dosage: UNK
     Route: 058
     Dates: start: 201511
  2. MELATONIN [Suspect]
     Active Substance: MELATONIN
     Indication: INITIAL INSOMNIA
     Dosage: 2 MG, UNK
     Dates: start: 201706, end: 201706
  3. NOVOLOG [Suspect]
     Active Substance: INSULIN ASPART
     Dosage: 132 UNITS
     Route: 058
     Dates: start: 201706

REACTIONS (2)
  - Blood glucose increased [Recovered/Resolved]
  - Product quality issue [Unknown]

NARRATIVE: CASE EVENT DATE: 201706
